FAERS Safety Report 25385507 (Version 1)
Quarter: 2025Q2

REPORT INFORMATION
  Report Type: Report from Study
  Country: US (occurrence: US)
  Receive Date: 20250602
  Receipt Date: 20250602
  Transmission Date: 20250716
  Serious: Yes (Hospitalization, Other)
  Sender: SANDOZ
  Company Number: US-002147023-NVSC2020US103237

PATIENT
  Age: 25 Year
  Sex: Female
  Weight: 54.422 kg

DRUGS (15)
  1. ADCIRCA [Suspect]
     Active Substance: TADALAFIL
     Indication: Pulmonary arterial hypertension
     Dosage: 20 MG, QD
     Route: 065
  2. ADCIRCA [Suspect]
     Active Substance: TADALAFIL
     Dosage: 40 MG, QD
     Route: 048
     Dates: start: 20201221
  3. OPSUMIT [Suspect]
     Active Substance: MACITENTAN
     Indication: Pulmonary arterial hypertension
     Dosage: 10 MG, QD
     Route: 048
     Dates: start: 201808
  4. REMODULIN [Suspect]
     Active Substance: TREPROSTINIL
     Indication: Pulmonary arterial hypertension
     Dosage: 80 NG/KG/MIN, QD
     Route: 042
     Dates: start: 201810
  5. TREPROSTINIL [Suspect]
     Active Substance: TREPROSTINIL
     Route: 042
  6. TREPROSTINIL [Suspect]
     Active Substance: TREPROSTINIL
     Indication: Pulmonary arterial hypertension
     Route: 042
     Dates: start: 20200331
  7. TREPROSTINIL [Suspect]
     Active Substance: TREPROSTINIL
     Route: 042
  8. TREPROSTINIL [Suspect]
     Active Substance: TREPROSTINIL
     Route: 042
  9. TREPROSTINIL [Suspect]
     Active Substance: TREPROSTINIL
     Route: 042
  10. WINREVAIR [Suspect]
     Active Substance: SOTATERCEPT-CSRK
     Indication: Product used for unknown indication
     Route: 065
  11. ADEMPAS [Concomitant]
     Active Substance: RIOCIGUAT
     Indication: Product used for unknown indication
     Route: 065
  12. IRON [Concomitant]
     Active Substance: IRON
     Indication: Product used for unknown indication
     Route: 065
  13. MACITENTAN\TADALAFIL [Concomitant]
     Active Substance: MACITENTAN\TADALAFIL
     Indication: Product used for unknown indication
     Route: 065
  14. SODIUM CHLORIDE [Concomitant]
     Active Substance: SODIUM CHLORIDE
     Indication: Product used for unknown indication
     Route: 065
  15. TYLENOL [Concomitant]
     Active Substance: ACETAMINOPHEN
     Indication: Product used for unknown indication
     Route: 065

REACTIONS (9)
  - Haemorrhagic ovarian cyst [Recovering/Resolving]
  - Syncope [Recovered/Resolved]
  - Ovarian cyst ruptured [Unknown]
  - Laboratory test abnormal [Unknown]
  - Hyperhidrosis [Unknown]
  - Presyncope [Recovered/Resolved]
  - Pulmonary arterial pressure increased [Unknown]
  - Weight decreased [Unknown]
  - Intentional product use issue [Unknown]

NARRATIVE: CASE EVENT DATE: 20200414
